FAERS Safety Report 6793139-7 (Version None)
Quarter: 2010Q2

REPORT INFORMATION
  Report Type: 
  Country: None (occurrence: None)
  Receive Date: 20100624
  Receipt Date: 20090601
  Transmission Date: 20101027
  Serious: Yes (Death)
  Sender: FDA-Public Use
  Company Number: US-MYLANLABS-2009S1009760

PATIENT
  Age: 44 Year
  Sex: Male

DRUGS (9)
  1. CLOZAPINE [Suspect]
     Route: 048
  2. CLOZAPINE [Suspect]
     Route: 048
  3. COGENTIN [Concomitant]
  4. DEPAKOTE [Concomitant]
  5. SYNTHROID [Concomitant]
  6. MULTI-VITAMIN [Concomitant]
  7. TENORMIN [Concomitant]
  8. COLACE [Concomitant]
  9. SENNA [Concomitant]

REACTIONS (1)
  - DEATH [None]
